FAERS Safety Report 11704835 (Version 1)
Quarter: 2015Q4

REPORT INFORMATION
  Report Type: Other
  Country: KR (occurrence: KR)
  Receive Date: 20151106
  Receipt Date: 20151106
  Transmission Date: 20160304
  Serious: Yes (Other)
  Sender: FDA-Public Use
  Company Number: KR-PURDUE PHARMA-USA-2015-0127159

PATIENT
  Age: 65 Year
  Sex: Male

DRUGS (2)
  1. FENTANYL. [Suspect]
     Active Substance: FENTANYL
     Indication: CANCER PAIN
     Route: 042
  2. OXYCODONE HYDROCHLORIDE (SIMILAR TO NDA 22-272) [Suspect]
     Active Substance: OXYCODONE HYDROCHLORIDE
     Indication: CANCER PAIN
     Route: 042

REACTIONS (3)
  - Agitation [Recovered/Resolved]
  - Disorientation [Recovered/Resolved]
  - Delirium [Recovered/Resolved]
